FAERS Safety Report 4396646-X (Version None)
Quarter: 2004Q3

REPORT INFORMATION
  Report Type: 
  Country: None (occurrence: None)
  Receive Date: 20040708
  Receipt Date: 20040702
  Transmission Date: 20050211
  Serious: Yes (Life-Threatening, Hospitalization)
  Sender: FDA-Public Use
  Company Number: STA-AE-04-MTX-289

PATIENT
  Age: 64 Year
  Sex: Male

DRUGS (12)
  1. RHEUMATREX [Suspect]
     Indication: RHEUMATOID ARTHRITIS
     Dosage: 6 MG 1X PER 1 WK, ORAL
     Route: 048
     Dates: start: 20030822, end: 20040504
  2. FAMOTIDINE [Concomitant]
  3. LASIX [Concomitant]
  4. BETAMETHASONE [Concomitant]
  5. HALCION [Concomitant]
  6. NAIXAN (NAPROXEN SODIUM) [Concomitant]
  7. FOSMAX (ALENDRONATE SODIUM) [Concomitant]
  8. VOLMAGEN (DICLOFENAC SODIUM) [Concomitant]
  9. PRAVASTATIN SODIUM [Concomitant]
  10. BUFFEIN (ACETYLSALICYLIC ACID/ALUMINUM GLYCINATE/MAGNESIUM CARBONATE) [Concomitant]
  11. METFORMIN HYDROCHLORIDE [Concomitant]
  12. GLYBURIDE [Concomitant]

REACTIONS (9)
  - BLOOD BETA-D-GLUCAN INCREASED [None]
  - CARDIAC FAILURE [None]
  - CYTOMEGALOVIRUS INFECTION [None]
  - DRUG INEFFECTIVE [None]
  - INTERSTITIAL LUNG DISEASE [None]
  - LYMPHOCYTE STIMULATION TEST POSITIVE [None]
  - MYOCARDIAL INFARCTION [None]
  - PNEUMOCYSTIS CARINII PNEUMONIA [None]
  - STUPOR [None]
